FAERS Safety Report 11717389 (Version 5)
Quarter: 2016Q1

REPORT INFORMATION
  Report Type: Report from Study
  Country: US (occurrence: US)
  Receive Date: 20151110
  Receipt Date: 20160322
  Transmission Date: 20160525
  Serious: No
  Sender: FDA-Public Use
  Company Number: US-AMGEN-USASP2015118256

PATIENT
  Age: 65 Year
  Sex: Female

DRUGS (1)
  1. ENBREL [Suspect]
     Active Substance: ETANERCEPT
     Indication: RHEUMATOID ARTHRITIS
     Dosage: 50 MG, EVERY WEEK
     Route: 058
     Dates: start: 201505

REACTIONS (20)
  - Neck pain [Unknown]
  - Cough [Recovering/Resolving]
  - Joint swelling [Unknown]
  - Joint range of motion decreased [Unknown]
  - Musculoskeletal pain [Unknown]
  - Drug dose omission [Unknown]
  - Musculoskeletal discomfort [Unknown]
  - Nausea [Unknown]
  - Injection site macule [Recovered/Resolved]
  - Drug effect incomplete [Unknown]
  - Discomfort [Unknown]
  - Condition aggravated [Unknown]
  - Oropharyngeal pain [Recovering/Resolving]
  - Hypoaesthesia [Unknown]
  - Urinary tract infection [Unknown]
  - Musculoskeletal stiffness [Unknown]
  - Arthralgia [Unknown]
  - Injection site extravasation [Unknown]
  - Mobility decreased [Unknown]
  - Pain in extremity [Unknown]

NARRATIVE: CASE EVENT DATE: 2015
